FAERS Safety Report 13839622 (Version 1)
Quarter: 2017Q3

REPORT INFORMATION
  Report Type: Spontaneous
  Country: US (occurrence: US)
  Receive Date: 20170805
  Receipt Date: 20170805
  Transmission Date: 20171127
  Serious: No
  Sender: FDA-Public Use
  Company Number: None

PATIENT
  Age: 57 Year
  Sex: Female

DRUGS (4)
  1. LABETALOL [Concomitant]
     Active Substance: LABETALOL\LABETALOL HYDROCHLORIDE
  2. THIAMINE. [Concomitant]
     Active Substance: THIAMINE
  3. IBUPROFEN. [Concomitant]
     Active Substance: IBUPROFEN
  4. LISINOPRIL. [Suspect]
     Active Substance: LISINOPRIL
     Indication: HYPERTENSION
     Route: 048
     Dates: start: 20160202, end: 20160202

REACTIONS (2)
  - Lip swelling [None]
  - Swelling face [None]

NARRATIVE: CASE EVENT DATE: 20160202
